FAERS Safety Report 8747835 (Version 2)
Quarter: 2012Q4

REPORT INFORMATION
  Report Type: 
  Country: US (occurrence: US)
  Receive Date: 20120827
  Receipt Date: 20121005
  Transmission Date: 20130627
  Serious: Yes (Other)
  Sender: FDA-Public Use
  Company Number: US-PFIZER INC-2012205777

PATIENT
  Age: 83 Year
  Sex: Male
  Weight: 69.84 kg

DRUGS (10)
  1. TOVIAZ [Suspect]
     Indication: HYPERTONIC BLADDER
     Dosage: 8 mg, 1x/day
     Route: 048
     Dates: start: 20120815
  2. LANOXIN [Concomitant]
     Dosage: 125 mg, UNK
  3. METOPROLOL [Concomitant]
     Indication: HYPERTENSION
     Dosage: 25 mg, UNK
  4. PRILOSEC [Concomitant]
     Dosage: UNK, 1x/day
  5. FLUOXETINE [Concomitant]
     Dosage: 10 mg, 1x/day
  6. ASPIRIN [Concomitant]
     Dosage: 81 mg, 1x/day
  7. LOVASTATIN [Concomitant]
     Dosage: 20 mg, 1x/day
  8. DIOVANE [Concomitant]
     Dosage: 80 mg, 1x/day
  9. BICALUTAMIDE [Concomitant]
     Dosage: 150 mg (three 50mg), 1x/day
  10. ZOLPIDEM [Concomitant]
     Dosage: 10 mg (two 5mg ), 1x/day

REACTIONS (2)
  - Hypertension [Unknown]
  - Abdominal discomfort [Unknown]
